FAERS Safety Report 4444820-6 (Version None)
Quarter: 2004Q3

REPORT INFORMATION
  Report Type: 
  Country: None (occurrence: None)
  Receive Date: 20040903
  Receipt Date: 20040823
  Transmission Date: 20050211
  Serious: Yes (Hospitalization)
  Sender: FDA-Public Use
  Company Number: 2004UW18210

PATIENT
  Sex: Female

DRUGS (2)
  1. IRESSA [Suspect]
     Dates: start: 20040401
  2. IRESSA [Suspect]

REACTIONS (6)
  - COUGH [None]
  - DYSPNOEA [None]
  - FEELING ABNORMAL [None]
  - LETHARGY [None]
  - PALPITATIONS [None]
  - WEIGHT INCREASED [None]
